FAERS Safety Report 9253683 (Version 3)
Quarter: 2013Q2

REPORT INFORMATION
  Report Type: Spontaneous
  Country: NL (occurrence: NL)
  Receive Date: 20130425
  Receipt Date: 20130606
  Transmission Date: 20140414
  Serious: Yes (Other)
  Sender: FDA-Public Use
  Company Number: NL-AMGEN-NLDSP2013028554

PATIENT
  Age: 61 Year
  Sex: Male

DRUGS (5)
  1. ENBREL [Suspect]
     Indication: PSORIASIS
     Dosage: 50 MG, 2X/WEEK
     Dates: start: 20130325
  2. ENBREL [Suspect]
     Dosage: 50 MG, 1X/DAY
  3. ENBREL [Suspect]
     Dosage: 50 MG, WEEKLY
     Dates: start: 20130513
  4. DIOVAN [Concomitant]
     Dosage: UNK
  5. TRIAMTERENE [Concomitant]
     Dosage: UNK

REACTIONS (5)
  - Transient ischaemic attack [Recovered/Resolved with Sequelae]
  - Hypertension [Recovered/Resolved with Sequelae]
  - Laryngitis [Recovered/Resolved with Sequelae]
  - Jaw disorder [Recovered/Resolved with Sequelae]
  - Hypoaesthesia [Recovered/Resolved with Sequelae]
